FAERS Safety Report 9108402 (Version 3)
Quarter: 2013Q2

REPORT INFORMATION
  Report Type: Spontaneous
  Country: US (occurrence: US)
  Receive Date: 20130222
  Receipt Date: 20130417
  Transmission Date: 20140414
  Serious: Yes (Other)
  Sender: FDA-Public Use
  Company Number: US-PURDUE-USA-2013-0098863

PATIENT
  Sex: Male
  Weight: 99.77 kg

DRUGS (6)
  1. OXYCONTIN TABLETS [Suspect]
     Indication: NECK PAIN
     Dosage: 15-80MG THREE TIMES A DAY
     Route: 048
     Dates: start: 2005
  2. OXYCONTIN TABLETS [Suspect]
     Indication: BACK PAIN
     Dosage: TWO, 20MG Q8H AND ONE, 20MG AT HS
  3. OXYCONTIN TABLETS [Suspect]
     Indication: NEUROPATHY PERIPHERAL
  4. OXYCODONE HCL IMMEDIATE RELEASE (91-490) [Suspect]
     Indication: NECK PAIN
     Dosage: 100-120 MG, DAILY
     Route: 048
  5. OXYCODONE HCL IMMEDIATE RELEASE (91-490) [Suspect]
     Indication: BACK PAIN
  6. OXYCODONE HCL IMMEDIATE RELEASE (91-490) [Suspect]
     Indication: NEUROPATHY PERIPHERAL

REACTIONS (11)
  - Cervical vertebral fracture [Unknown]
  - Spinal disorder [Unknown]
  - Nerve injury [Unknown]
  - Drug withdrawal syndrome [Recovered/Resolved]
  - Neck pain [Unknown]
  - Musculoskeletal pain [Unknown]
  - Pain in extremity [Unknown]
  - Pain [Unknown]
  - Chills [Recovered/Resolved]
  - Hyperhidrosis [Recovered/Resolved]
  - Cold sweat [Recovered/Resolved]
